FAERS Safety Report 5977927-2 (Version None)
Quarter: 2008Q4

REPORT INFORMATION
  Report Type: 
  Country: None (occurrence: None)
  Receive Date: 20081203
  Receipt Date: 20081126
  Transmission Date: 20090506
  Serious: No
  Sender: FDA-Public Use
  Company Number: US-B.I. PHARMACEUTICALS,INC./RIDGEFIELD-2008-BP-17975BP

PATIENT
  Sex: Male

DRUGS (11)
  1. SPIRIVA [Suspect]
     Indication: EMPHYSEMA
     Dosage: 18MCG
     Route: 055
     Dates: start: 20081002
  2. TOPROL-XL [Concomitant]
     Indication: CARDIAC DISORDER
     Dosage: 25MG
  3. LIPITOR [Concomitant]
     Indication: BLOOD CHOLESTEROL INCREASED
     Dosage: 40MG
  4. XANAX [Concomitant]
     Indication: ANXIETY
     Dosage: 1MG
  5. ALTACE [Concomitant]
     Indication: CARDIAC DISORDER
     Dosage: 10MG
  6. ZETIA [Concomitant]
     Indication: BLOOD CHOLESTEROL INCREASED
     Dosage: 10MG
  7. PLAVIX [Concomitant]
     Indication: CARDIAC DISORDER
     Dosage: 75MG
  8. PROTONIX [Concomitant]
     Indication: GASTROOESOPHAGEAL REFLUX DISEASE
     Dosage: 40MG
  9. ASPIRIN [Concomitant]
     Indication: CARDIAC DISORDER
     Dosage: 325MG
  10. STOOL SOFTENER [Concomitant]
  11. NITROGLYCERIN [Concomitant]
     Indication: CARDIAC DISORDER
     Dosage: .2MG

REACTIONS (2)
  - ARTERIAL DISORDER [None]
  - RASH MACULAR [None]
